FAERS Safety Report 8531234-2 (Version None)
Quarter: 2012Q3

REPORT INFORMATION
  Report Type: 
  Country: None (occurrence: None)
  Receive Date: 20120723
  Receipt Date: 20120717
  Transmission Date: 20120928
  Serious: Yes (Hospitalization, Other)
  Sender: FDA-Public Use
  Company Number: GB-PFIZER INC-2012171775

PATIENT
  Age: 40 Year
  Sex: Male
  Weight: 92.5 kg

DRUGS (3)
  1. IBUPROFEN [Suspect]
     Indication: GASTRIC DISORDER
     Dosage: 200 MG, BID
     Dates: start: 20120609, end: 20120609
  2. ALKA-SELTZER [Suspect]
     Indication: ABDOMINAL DISCOMFORT
     Dosage: 2 DF, ONCE
     Dates: start: 20120609, end: 20120609
  3. OMEPRAZOLE [Concomitant]
     Indication: ABDOMINAL DISCOMFORT
     Dosage: UNK

REACTIONS (9)
  - ASTHENIA [None]
  - DIZZINESS [None]
  - MALAISE [None]
  - QUADRIPLEGIA [None]
  - HYPOAESTHESIA [None]
  - ABDOMINAL DISCOMFORT [None]
  - PARAESTHESIA [None]
  - MOBILITY DECREASED [None]
  - VIITH NERVE PARALYSIS [None]
